FAERS Safety Report 7112740-4 (Version None)
Quarter: 2010Q4

REPORT INFORMATION
  Report Type: 
  Country: None (occurrence: None)
  Receive Date: 20101119
  Receipt Date: 20101112
  Transmission Date: 20110411
  Serious: Yes (Other)
  Sender: FDA-Public Use
  Company Number: US-PFIZER INC-2010147463

PATIENT
  Sex: Female
  Weight: 58.957 kg

DRUGS (3)
  1. CELEBREX [Suspect]
     Indication: ARTHRALGIA
     Dosage: 200 MG, 2X/DAY
     Route: 048
     Dates: start: 20101105
  2. CELEBREX [Suspect]
     Indication: OSTEOARTHRITIS
  3. VOLTAREN [Concomitant]
     Dosage: UNK

REACTIONS (4)
  - FEELING ABNORMAL [None]
  - HYPOKINESIA [None]
  - INJURY [None]
  - PAIN IN EXTREMITY [None]
